FAERS Safety Report 17370083 (Version 2)
Quarter: 2020Q1

REPORT INFORMATION
  Report Type: Report from Study
  Country: US (occurrence: US)
  Receive Date: 20200205
  Receipt Date: 20200214
  Transmission Date: 20200409
  Serious: No
  Sender: FDA-Public Use
  Company Number: US-SHIRE-US202003918

PATIENT
  Age: 66 Year
  Sex: Female

DRUGS (1)
  1. GATTEX [Suspect]
     Active Substance: TEDUGLUTIDE\WATER
     Indication: SHORT-BOWEL SYNDROME
     Dosage: 0.38 UNK, OTHER
     Route: 058
     Dates: start: 20190408

REACTIONS (6)
  - Constipation [Unknown]
  - Diarrhoea [Unknown]
  - Proctalgia [Unknown]
  - Muscle spasms [Not Recovered/Not Resolved]
  - Anal fissure [Unknown]
  - Nausea [Unknown]

NARRATIVE: CASE EVENT DATE: 20200129
